FAERS Safety Report 8832871 (Version 1)
Quarter: 2012Q4

REPORT INFORMATION
  Report Type: Spontaneous
  Country: US (occurrence: None)
  Receive Date: 20121009
  Receipt Date: 20121009
  Transmission Date: 20130627
  Serious: Yes (Hospitalization, Other)
  Sender: FDA-Public Use
  Company Number: None

PATIENT
  Age: 46 Year
  Sex: Female

DRUGS (1)
  1. CELEXA [Suspect]
     Dosage: only took 1 dose
     Route: 048
     Dates: start: 20120905, end: 20120905

REACTIONS (5)
  - Panic reaction [None]
  - Anxiety [None]
  - Electrocardiogram T wave amplitude decreased [None]
  - Hypoaesthesia [None]
  - Paraesthesia [None]
